APPROVED DRUG PRODUCT: DOXYCYCLINE
Active Ingredient: DOXYCYCLINE
Strength: 40MG
Dosage Form/Route: CAPSULE;ORAL
Application: A219978 | Product #001 | TE Code: AB
Applicant: AIPING PHARMACEUTICAL INC
Approved: Oct 1, 2025 | RLD: No | RS: No | Type: RX